FAERS Safety Report 8574171-X (Version None)
Quarter: 2012Q3

REPORT INFORMATION
  Report Type: 
  Country: None (occurrence: None)
  Receive Date: 20120806
  Receipt Date: 20120803
  Transmission Date: 20120928
  Serious: Yes (Death)
  Sender: FDA-Public Use
  Company Number: US-JNJFOC-20120702523

PATIENT
  Sex: Male
  Weight: 74 kg

DRUGS (6)
  1. ISO-BID [Concomitant]
  2. RIVAROXABAN [Suspect]
     Indication: ATRIAL FIBRILLATION
     Route: 048
  3. OXYBUTYNIN [Concomitant]
  4. IBUPROFEN [Concomitant]
  5. RIVAROXABAN [Suspect]
     Indication: CEREBROVASCULAR ACCIDENT PROPHYLAXIS
     Route: 048
  6. TOCOPHEROL CONCENTRATE CAP [Concomitant]

REACTIONS (5)
  - HAEMOGLOBIN DECREASED [None]
  - INTERNATIONAL NORMALISED RATIO INCREASED [None]
  - PLATELET COUNT DECREASED [None]
  - SUBDURAL HAEMATOMA [None]
  - FALL [None]
